FAERS Safety Report 9528382 (Version 1)
Quarter: 2013Q3

REPORT INFORMATION
  Report Type: Spontaneous
  Country: FR (occurrence: FR)
  Receive Date: 20130917
  Receipt Date: 20130917
  Transmission Date: 20140515
  Serious: Yes (Hospitalization)
  Sender: FDA-Public Use
  Company Number: FR-PFIZER INC-2013263221

PATIENT
  Age: 55 Year
  Sex: Male

DRUGS (21)
  1. TAZOCILLINE [Suspect]
     Indication: LUNG DISORDER
     Dosage: UNK
     Route: 051
     Dates: start: 20120104, end: 20120111
  2. AMIKACIN [Suspect]
     Indication: LUNG DISORDER
     Dosage: UNK
     Route: 051
     Dates: start: 20120104, end: 20120106
  3. VANCOMYCIN [Suspect]
     Indication: LUNG DISORDER
     Dosage: UNK
     Route: 051
     Dates: start: 20120106, end: 20120107
  4. LOVENOX [Concomitant]
  5. PARACETAMOL [Concomitant]
  6. TOPALGIC [Concomitant]
  7. INEXIUM [Concomitant]
  8. TAHOR [Concomitant]
  9. GAVISCON [Concomitant]
  10. ORACILLINE [Concomitant]
  11. FLUIMUCIL [Concomitant]
  12. FORLAX [Concomitant]
  13. SPECIAFOLDINE [Concomitant]
  14. TARDYFERON [Concomitant]
  15. CORTANCYL [Concomitant]
  16. PRIMPERAN [Concomitant]
  17. GRANOCYTE [Concomitant]
  18. EPREX [Concomitant]
  19. CISPLATIN [Concomitant]
     Indication: CHEMOTHERAPY
     Dosage: UNK
     Dates: start: 20111228
  20. ALIMTA [Concomitant]
     Indication: CHEMOTHERAPY
     Dosage: UNK
     Dates: start: 20111228
  21. AUGMENTIN [Concomitant]
     Indication: LUNG DISORDER
     Dosage: 1 G, 3X/DAY
     Dates: start: 20120101, end: 20120103

REACTIONS (1)
  - Toxic skin eruption [Recovered/Resolved]
